FAERS Safety Report 21502349 (Version 2)
Quarter: 2022Q4

REPORT INFORMATION
  Report Type: Spontaneous
  Country: US (occurrence: US)
  Receive Date: 20221025
  Receipt Date: 20221205
  Transmission Date: 20230113
  Serious: No
  Sender: FDA-Public Use
  Company Number: US-KARYOPHARM-2022KPT001179

PATIENT

DRUGS (6)
  1. XPOVIO [Suspect]
     Active Substance: SELINEXOR
     Indication: Plasma cell myeloma
     Dosage: 80 MG, WEEKLY
     Route: 048
     Dates: start: 20220928
  2. JARDIANCE [Concomitant]
     Active Substance: EMPAGLIFLOZIN
  3. DECADRON [Concomitant]
     Active Substance: DEXAMETHASONE
  4. ATENOLOL [Concomitant]
     Active Substance: ATENOLOL
  5. NORVASC [Concomitant]
     Active Substance: AMLODIPINE BESYLATE
  6. DARZALEX [Concomitant]
     Active Substance: DARATUMUMAB

REACTIONS (10)
  - Blood glucose increased [Not Recovered/Not Resolved]
  - Blood pressure increased [Unknown]
  - Taste disorder [Unknown]
  - Dry mouth [Unknown]
  - Blood calcium increased [Unknown]
  - Eye movement disorder [Not Recovered/Not Resolved]
  - Heart rate irregular [Unknown]
  - Decreased appetite [Unknown]
  - Vision blurred [Not Recovered/Not Resolved]
  - Weight decreased [Unknown]

NARRATIVE: CASE EVENT DATE: 20220101
